FAERS Safety Report 7501445-3 (Version None)
Quarter: 2011Q2

REPORT INFORMATION
  Report Type: 
  Country: None (occurrence: None)
  Receive Date: 20110524
  Receipt Date: 20110510
  Transmission Date: 20111010
  Serious: Yes (Hospitalization, Other)
  Sender: FDA-Public Use
  Company Number: PHHY2011US39011

PATIENT
  Sex: Female

DRUGS (5)
  1. DIOVAN HCT [Suspect]
     Indication: HYPERTENSION
     Dosage: 160 MG VALS AND 15.5 MG HYDR,  DAILY
     Route: 048
     Dates: start: 20110301
  2. LIPITOR [Suspect]
     Dosage: 40 MG, DAILY
  3. AVALIDE [Suspect]
     Indication: HYPERTENSION
     Dosage: 300 MG IRBE AND 12.5 MG HYDR , DAILY
     Route: 048
  4. CLIMARA [Suspect]
  5. LIPITOR [Suspect]
     Indication: BLOOD CHOLESTEROL INCREASED
     Dosage: 20 MG, DAILY
     Route: 048

REACTIONS (2)
  - COSTOCHONDRITIS [None]
  - CHEST PAIN [None]
